FAERS Safety Report 12631767 (Version 2)
Quarter: 2016Q3

REPORT INFORMATION
  Report Type: Spontaneous
  Country: US (occurrence: US)
  Receive Date: 20160808
  Receipt Date: 20160808
  Transmission Date: 20161109
  Serious: No
  Sender: FDA-Public Use
  Company Number: US-BEH-2016060955

PATIENT
  Sex: Female
  Weight: 177 kg

DRUGS (18)
  1. HIZENTRA [Suspect]
     Active Substance: HUMAN IMMUNOGLOBULIN G
     Route: 058
  2. MEDROL [Concomitant]
     Active Substance: METHYLPREDNISOLONE
  3. LAMOTRIGINE. [Concomitant]
     Active Substance: LAMOTRIGINE
  4. BACTRIM DS [Concomitant]
     Active Substance: SULFAMETHOXAZOLE\TRIMETHOPRIM
  5. VALTREX [Concomitant]
     Active Substance: VALACYCLOVIR HYDROCHLORIDE
  6. FAMVIR [Concomitant]
     Active Substance: FAMCICLOVIR
  7. METOPROLOL. [Concomitant]
     Active Substance: METOPROLOL
  8. SUCC [Concomitant]
  9. CLONAZEPAM. [Concomitant]
     Active Substance: CLONAZEPAM
  10. EPIPEN [Concomitant]
     Active Substance: EPINEPHRINE
  11. L-M-X [Concomitant]
  12. TRAZODONE [Concomitant]
     Active Substance: TRAZODONE HYDROCHLORIDE
  13. ACYCLOVIR. [Concomitant]
     Active Substance: ACYCLOVIR
  14. FLUDROCORTISONE [Concomitant]
     Active Substance: FLUDROCORTISONE
  15. ACETAMINOPHEN. [Concomitant]
     Active Substance: ACETAMINOPHEN
  16. DIPHENHYDRAMINE. [Concomitant]
     Active Substance: DIPHENHYDRAMINE
  17. CLINDAMYCIN [Concomitant]
     Active Substance: CLINDAMYCIN\CLINDAMYCIN PHOSPHATE
  18. BIAXIN [Concomitant]
     Active Substance: CLARITHROMYCIN

REACTIONS (1)
  - Viral infection [Unknown]
